FAERS Safety Report 25093613 (Version 2)
Quarter: 2025Q1

REPORT INFORMATION
  Report Type: Spontaneous
  Country: BG (occurrence: BG)
  Receive Date: 20250319
  Receipt Date: 20250326
  Transmission Date: 20250409
  Serious: Yes (Hospitalization)
  Sender: MACLEODS
  Company Number: BG-MLMSERVICE-20250228-PI432833-00328-1

PATIENT

DRUGS (7)
  1. VALSARTAN [Suspect]
     Active Substance: VALSARTAN
     Indication: Hypertension
     Dosage: HALF A TABLET IN THE MORNING
     Route: 065
     Dates: start: 202304, end: 2024
  2. BISOPROLOL [Suspect]
     Active Substance: BISOPROLOL
     Indication: Hypertension
     Dosage: HALF A TABLET IN THE MORNING
     Route: 065
     Dates: start: 202304, end: 2024
  3. SPIRONOLACTONE [Suspect]
     Active Substance: SPIRONOLACTONE
     Indication: Hypertension
     Dosage: ONCE IN THE MORNING, 25 MG
     Route: 065
     Dates: start: 202304, end: 2024
  4. CHLORTHALIDONE [Suspect]
     Active Substance: CHLORTHALIDONE
     Indication: Hypertension
     Dosage: ONCE IN THE MORNING, 25 MG
     Route: 065
     Dates: start: 202304, end: 2024
  5. CLOPIDOGREL [Concomitant]
     Active Substance: CLOPIDOGREL BISULFATE
     Indication: Product used for unknown indication
     Dosage: ONCE IN THE MORNING
     Route: 065
     Dates: start: 202304
  6. BETAHISTINE [Concomitant]
     Active Substance: BETAHISTINE
     Indication: Product used for unknown indication
     Dosage: TWICE DAILY - ONE IN THE MORNING AND ONE IN THE EVENING
     Route: 065
     Dates: start: 202304
  7. ROSUVASTATIN [Concomitant]
     Active Substance: ROSUVASTATIN
     Indication: Product used for unknown indication
     Dosage: ONCE IN THE EVENING, 10 MG
     Route: 065
     Dates: start: 202304

REACTIONS (1)
  - Lichen planopilaris [Recovering/Resolving]

NARRATIVE: CASE EVENT DATE: 20240101
